FAERS Safety Report 9280748 (Version 1)
Quarter: 2013Q2

REPORT INFORMATION
  Report Type: Spontaneous
  Country: US (occurrence: US)
  Receive Date: 20130509
  Receipt Date: 20130509
  Transmission Date: 20140414
  Serious: No
  Sender: FDA-Public Use
  Company Number: US-PFIZER INC-2013143758

PATIENT
  Age: 33 Year
  Sex: Male
  Weight: 70.3 kg

DRUGS (4)
  1. NEURONTIN [Suspect]
     Indication: NERVE INJURY
     Dosage: UNK
  2. NEURONTIN [Suspect]
     Indication: PAIN
     Dosage: 800 MG, 4X/DAY
  3. XANAX [Suspect]
     Indication: PSYCHOTIC DISORDER
     Dosage: 3 MG, 1X/DAY
     Route: 048
  4. SUBOXONE [Concomitant]
     Indication: DRUG DEPENDENCE
     Dosage: UNK

REACTIONS (5)
  - Mood swings [Unknown]
  - Feeling abnormal [Unknown]
  - Depressed mood [Unknown]
  - Pain [Unknown]
  - Drug administration error [Unknown]
